FAERS Safety Report 8291564-9 (Version None)
Quarter: 2012Q2

REPORT INFORMATION
  Report Type: 
  Country: None (occurrence: None)
  Receive Date: 20120417
  Receipt Date: 20120406
  Transmission Date: 20120825
  Serious: Yes (Other)
  Sender: FDA-Public Use
  Company Number: US-ELI_LILLY_AND_COMPANY-US201204003260

PATIENT
  Sex: Female

DRUGS (6)
  1. HUMALOG MIX 75/25 [Suspect]
     Dosage: 30 U, EACH EVENING
  2. HUMALOG MIX 75/25 [Suspect]
     Dosage: UNK, PRN
  3. HUMALOG MIX 75/25 [Suspect]
     Dosage: 12 U, EACH MORNING
  4. HUMALOG MIX 75/25 [Suspect]
     Indication: DIABETES MELLITUS
     Dosage: 12 U, EACH MORNING
  5. HUMALOG MIX 75/25 [Suspect]
     Dosage: 30 U, EACH EVENING
  6. HUMALOG MIX 75/25 [Suspect]
     Dosage: UNK, PRN

REACTIONS (4)
  - UNDERDOSE [None]
  - ANAESTHETIC COMPLICATION [None]
  - AMNESIA [None]
  - HIP ARTHROPLASTY [None]
